FAERS Safety Report 8781079 (Version 6)
Quarter: 2015Q3

REPORT INFORMATION
  Report Type: Report from Study
  Country: VE (occurrence: VE)
  Receive Date: 20120913
  Receipt Date: 20150725
  Transmission Date: 20151125
  Serious: Yes (Death, Hospitalization)
  Sender: FDA-Public Use
  Company Number: PHHO2011VE17401

PATIENT
  Age: 48 Year
  Sex: Female
  Weight: 60 kg

DRUGS (10)
  1. LOSARTAN. [Concomitant]
     Active Substance: LOSARTAN
     Indication: HYPERTENSION
     Dosage: 50 MG, QD
     Route: 048
     Dates: start: 20110920
  2. ATAMEL [Concomitant]
     Indication: HEADACHE
     Dosage: 650 MG
     Route: 048
     Dates: start: 20110818
  3. ATAMEL [Concomitant]
     Indication: PYREXIA
  4. COMPARATOR PACLITAXEL [Suspect]
     Active Substance: PACLITAXEL
     Indication: BREAST CANCER METASTATIC
     Dosage: 128 MG, QW
     Route: 042
     Dates: start: 20110822, end: 20111003
  5. COMPARATOR TRASTUZUMAB [Suspect]
     Active Substance: TRASTUZUMAB
     Indication: BREAST CANCER METASTATIC
     Dosage: 120 MG, QW
     Route: 042
     Dates: start: 20110922
  6. LANZOPRAL [Concomitant]
     Indication: PROPHYLAXIS
     Dosage: 30 MG, QD
     Route: 048
     Dates: start: 20110729
  7. AFINITOR [Suspect]
     Active Substance: EVEROLIMUS
     Indication: BREAST CANCER METASTATIC
     Dosage: UNK
     Route: 048
     Dates: start: 20110822
  8. METICORTEN [Concomitant]
     Active Substance: PREDNISONE
     Indication: METASTASES TO LUNG
     Dosage: 50 MG, QD
     Route: 048
     Dates: start: 20110809, end: 20111010
  9. ATORVASTATIN [Concomitant]
     Active Substance: ATORVASTATIN
     Indication: DYSLIPIDAEMIA
     Dosage: 40 MG, QD
     Route: 048
     Dates: start: 20110818, end: 20111010
  10. BONDRONAT [Concomitant]
     Active Substance: IBANDRONIC ACID
     Indication: METASTASES TO BONE
     Dosage: 6 MG PER MONTH
     Route: 042
     Dates: start: 20110822

REACTIONS (1)
  - Pulmonary embolism [Fatal]

NARRATIVE: CASE EVENT DATE: 20111010
